FAERS Safety Report 18378332 (Version 3)
Quarter: 2020Q4

REPORT INFORMATION
  Report Type: Spontaneous
  Country: US (occurrence: US)
  Receive Date: 20201013
  Receipt Date: 20201207
  Transmission Date: 20210114
  Serious: Yes (Disabling, Other)
  Sender: FDA-Public Use
  Company Number: US-SA-2020SA278763

PATIENT

DRUGS (1)
  1. ZANTAC [Suspect]
     Active Substance: RANITIDINE HYDROCHLORIDE
     Indication: DYSPEPSIA
     Dosage: 150 MG APPROXIMATELY 2 BOXES PER MONTH AS NEEDED
     Route: 048
     Dates: start: 198301, end: 201910

REACTIONS (24)
  - Abdominal lymphadenopathy [Unknown]
  - Gastritis [Unknown]
  - Life expectancy shortened [Unknown]
  - Dry mouth [Unknown]
  - Disability [Unknown]
  - Oesophagitis [Unknown]
  - Muscle spasms [Unknown]
  - Lymphadenopathy [Unknown]
  - Weight decreased [Unknown]
  - Anxiety disorder [Unknown]
  - Panic attack [Unknown]
  - Anxiety [Unknown]
  - Cough [Unknown]
  - Metastatic neoplasm [Unknown]
  - Dry skin [Unknown]
  - Muscular weakness [Unknown]
  - Abdominal discomfort [Unknown]
  - Decreased appetite [Unknown]
  - Malaise [Unknown]
  - Condition aggravated [Unknown]
  - Constipation [Unknown]
  - Nausea [Unknown]
  - Deep vein thrombosis [Unknown]
  - Lymph node pain [Unknown]

NARRATIVE: CASE EVENT DATE: 20200616
